FAERS Safety Report 9461345 (Version 1)
Quarter: 2013Q3

REPORT INFORMATION
  Report Type: Spontaneous
  Country: US (occurrence: None)
  Receive Date: 20130814
  Receipt Date: 20130814
  Transmission Date: 20140515
  Serious: Yes (Life-Threatening, Hospitalization, Other)
  Sender: FDA-Public Use
  Company Number: None

PATIENT
  Age: 68 Year
  Sex: Female

DRUGS (21)
  1. CLOPIDOGREL [Suspect]
     Indication: CARDIAC DISORDER
     Route: 048
     Dates: start: 20130213, end: 20130301
  2. CELEBREX [Suspect]
     Indication: ARTHRITIS
     Route: 048
     Dates: start: 1986
  3. NITROFURANTOIN [Suspect]
     Route: 048
     Dates: start: 20080315
  4. VERAPAMIL [Suspect]
     Indication: CARDIAC DISORDER
     Route: 048
     Dates: start: 1997
  5. VERAPAMIL [Suspect]
     Indication: BLOOD PRESSURE
     Route: 048
     Dates: start: 1997
  6. CALAN SL [Concomitant]
  7. SYNTHROID [Concomitant]
  8. ASA [Concomitant]
  9. PREMARIN [Concomitant]
  10. PLAVIX [Concomitant]
  11. DIOVAN [Concomitant]
  12. LASIX [Concomitant]
  13. RESTASIS [Concomitant]
  14. CALSIUM [Concomitant]
  15. MAGNESSIUM [Concomitant]
  16. FISH OIL [Concomitant]
  17. VIT C [Concomitant]
  18. POTASSIUM [Concomitant]
  19. FLAXSEED [Concomitant]
  20. VIT D [Concomitant]
  21. BENTAL [Concomitant]

REACTIONS (19)
  - Fatigue [None]
  - Gait disturbance [None]
  - Vomiting projectile [None]
  - Diarrhoea [None]
  - Skin haemorrhage [None]
  - Cerebral haemorrhage [None]
  - Foaming at mouth [None]
  - Oedema [None]
  - Dyspnoea [None]
  - Chest discomfort [None]
  - Headache [None]
  - Urticaria [None]
  - Muscle spasms [None]
  - Pain [None]
  - Loss of consciousness [None]
  - Chest pain [None]
  - Dizziness [None]
  - Abasia [None]
  - Cardiac failure [None]
